FAERS Safety Report 4532468-4 (Version None)
Quarter: 2004Q4

REPORT INFORMATION
  Report Type: 
  Country: None (occurrence: None)
  Receive Date: 20041220
  Receipt Date: 20041210
  Transmission Date: 20050328
  Serious: Yes (Death)
  Sender: FDA-Public Use
  Company Number: LB-MERCK-0412USA01264

PATIENT
  Sex: Male

DRUGS (4)
  1. PRIMAXIN [Suspect]
     Indication: PNEUMONIA
     Route: 065
  2. VANCOMYCIN [Concomitant]
     Route: 065
  3. DIFLUCAN [Concomitant]
     Route: 065
  4. [THERAPY UNSPECIFIED] [Concomitant]
     Route: 065

REACTIONS (1)
  - DEATH [None]
